FAERS Safety Report 6293427-7 (Version None)
Quarter: 2009Q3

REPORT INFORMATION
  Report Type: 
  Country: None (occurrence: None)
  Receive Date: 20090803
  Receipt Date: 20090728
  Transmission Date: 20100115
  Serious: Yes (Hospitalization)
  Sender: FDA-Public Use
  Company Number: US-BIOGENIDEC-2009BI003307

PATIENT
  Age: 58 Year
  Sex: Male
  Weight: 122 kg

DRUGS (1)
  1. TYSABRI [Suspect]
     Indication: MULTIPLE SCLEROSIS
     Route: 042
     Dates: start: 20070822

REACTIONS (3)
  - RENAL ABSCESS [None]
  - SEPTIC SHOCK [None]
  - URINARY TRACT INFECTION [None]
